FAERS Safety Report 7527011-1 (Version None)
Quarter: 2011Q2

REPORT INFORMATION
  Report Type: 
  Country: None (occurrence: None)
  Receive Date: 20110606
  Receipt Date: 20100713
  Transmission Date: 20111010
  Serious: No
  Sender: FDA-Public Use
  Company Number: US-BAYER-201028563NA

PATIENT
  Age: 55 Year
  Sex: Female

DRUGS (4)
  1. LEXAPRO [Interacting]
     Indication: DEPRESSION
     Dosage: 10 MG, QD
     Route: 048
     Dates: start: 20100602
  2. IBUPROFEN [Concomitant]
     Dosage: UNK UNK, PRN
  3. NICODERM [Interacting]
     Indication: EX-TOBACCO USER
     Dosage: UNK
     Dates: start: 20100616, end: 20100616
  4. AVELOX [Suspect]
     Indication: INFECTION
     Dosage: 400 MG, QD
     Route: 048
     Dates: start: 20100616, end: 20100616

REACTIONS (3)
  - HYPERSENSITIVITY [None]
  - SWOLLEN TONGUE [None]
  - SWELLING FACE [None]
